FAERS Safety Report 4861001-2 (Version None)
Quarter: 2005Q4

REPORT INFORMATION
  Report Type: 
  Country: None (occurrence: None)
  Receive Date: 20051216
  Receipt Date: 20051202
  Transmission Date: 20060501
  Serious: Yes (Hospitalization)
  Sender: FDA-Public Use
  Company Number: SUSI-2005-00867

PATIENT
  Age: 44 Year
  Sex: Female

DRUGS (6)
  1. CARBATROL [Suspect]
     Dosage: SEE IMAGE
  2. PAROXETINE (PAROXETINE) [Concomitant]
  3. RISPERIDONE [Concomitant]
  4. BUSPIRONE HCL [Concomitant]
  5. NADOLOL [Concomitant]
  6. HYDROXYZINE [Concomitant]

REACTIONS (16)
  - ANTICONVULSANT DRUG LEVEL ABOVE THERAPEUTIC [None]
  - BLOOD CHLORIDE DECREASED [None]
  - BLOOD OSMOLARITY DECREASED [None]
  - CONVULSIVE THRESHOLD LOWERED [None]
  - DIZZINESS [None]
  - DRUG INTERACTION [None]
  - GRAND MAL CONVULSION [None]
  - HYPONATRAEMIA [None]
  - INCORRECT DOSE ADMINISTERED [None]
  - LOSS OF CONSCIOUSNESS [None]
  - NYSTAGMUS [None]
  - SENSATION OF BLOOD FLOW [None]
  - SYNCOPE [None]
  - TREATMENT NONCOMPLIANCE [None]
  - URINE SODIUM DECREASED [None]
  - VISUAL FIELD DEFECT [None]
